FAERS Safety Report 14690088 (Version 1)
Quarter: 2018Q1

REPORT INFORMATION
  Report Type: Spontaneous
  Country: FR (occurrence: FR)
  Receive Date: 20180328
  Receipt Date: 20180328
  Transmission Date: 20180509
  Serious: Yes (Other)
  Sender: FDA-Public Use
  Company Number: FR-TEVA-2018-FR-871701

PATIENT
  Age: 65 Year
  Sex: Female

DRUGS (2)
  1. ZYMAD [Concomitant]
     Active Substance: CHOLECALCIFEROL
     Indication: VITAMIN D DEFICIENCY
     Route: 048
     Dates: start: 20150901
  2. RALOXIFENE TEVA [Suspect]
     Active Substance: RALOXIFENE
     Indication: OSTEOPOROSIS POSTMENOPAUSAL
     Route: 048
     Dates: start: 20150901

REACTIONS (5)
  - Gait disturbance [Recovered/Resolved with Sequelae]
  - Myalgia [Recovered/Resolved]
  - Joint effusion [Recovered/Resolved]
  - Arthralgia [Recovered/Resolved]
  - Joint range of motion decreased [Recovered/Resolved]

NARRATIVE: CASE EVENT DATE: 20161215
